FAERS Safety Report 9925674 (Version 1)
Quarter: 2014Q1

REPORT INFORMATION
  Report Type: Spontaneous
  Country: JP (occurrence: JP)
  Receive Date: 20140226
  Receipt Date: 20140226
  Transmission Date: 20141002
  Serious: Yes (Hospitalization)
  Sender: FDA-Public Use
  Company Number: JP-GLAXOSMITHKLINE-B0967304A

PATIENT
  Age: 84 Year
  Sex: Female
  Weight: 49 kg

DRUGS (5)
  1. VALTREX [Suspect]
     Indication: HERPES ZOSTER
     Dosage: 1000MG THREE TIMES PER DAY
     Route: 048
     Dates: start: 20140131, end: 20140203
  2. VOLTAREN [Suspect]
     Indication: HERPES ZOSTER
     Dosage: 25MG THREE TIMES PER DAY
     Route: 048
     Dates: start: 20140131, end: 20140203
  3. CONIEL [Concomitant]
     Route: 048
  4. MECOBALAMIN [Concomitant]
     Route: 065
  5. EURODIN [Concomitant]
     Route: 048

REACTIONS (3)
  - Delirium [Recovered/Resolved]
  - Renal disorder [Recovered/Resolved]
  - Dyslalia [Unknown]
